FAERS Safety Report 12584863 (Version 1)
Quarter: 2016Q3

REPORT INFORMATION
  Report Type: Spontaneous
  Country: JP (occurrence: JP)
  Receive Date: 20160722
  Receipt Date: 20160722
  Transmission Date: 20161109
  Serious: Yes (Other)
  Sender: FDA-Public Use
  Company Number: JP-009507513-1607JPN007411

PATIENT
  Age: 70 Year
  Sex: Male

DRUGS (3)
  1. REMERON [Suspect]
     Active Substance: MIRTAZAPINE
     Dosage: DAILY DOSAGE UNKNOWN
     Route: 048
  2. DEPAS [Suspect]
     Active Substance: ETIZOLAM
     Dosage: DAILY DOSAGE UNKNOWN
     Route: 048
  3. ROHYPNOL [Suspect]
     Active Substance: FLUNITRAZEPAM
     Dosage: 1 MG, QD, FORMULATION REPORTED AS PER ORAL PREPARATION (POR)
     Route: 048

REACTIONS (3)
  - Sjogren-Larsson syndrome [Unknown]
  - Thirst [Unknown]
  - Dry eye [Unknown]
